FAERS Safety Report 4327469-5 (Version None)
Quarter: 2004Q1

REPORT INFORMATION
  Report Type: 
  Country: None (occurrence: None)
  Receive Date: 20040325
  Receipt Date: 19950331
  Transmission Date: 20041129
  Serious: Yes (Death, Life-Threatening, Hospitalization)
  Sender: FDA-Public Use
  Company Number: WAES 95061047

PATIENT
  Age: 11 Day
  Sex: Female

DRUGS (4)
  1. INDOCIN I.V. [Suspect]
     Indication: PATENT DUCTUS ARTERIOSUS
     Dosage: SEE IMAGE
     Route: 042
     Dates: start: 19950101, end: 19950101
  2. INDOCIN I.V. [Suspect]
     Indication: PATENT DUCTUS ARTERIOSUS
     Dosage: SEE IMAGE
     Route: 042
     Dates: start: 19950102, end: 19950102
  3. AMINOPHYLLINE [Concomitant]
  4. DOPAMINE HCL [Concomitant]

REACTIONS (4)
  - DRUG INEFFECTIVE [None]
  - GASTROINTESTINAL HAEMORRHAGE [None]
  - PLATELET COUNT DECREASED [None]
  - SEPTIC SHOCK [None]
